FAERS Safety Report 4736833-1 (Version None)
Quarter: 2005Q3

REPORT INFORMATION
  Report Type: 
  Country: None (occurrence: None)
  Receive Date: 20050808
  Receipt Date: 20030321
  Transmission Date: 20060218
  Serious: Yes (Hospitalization)
  Sender: FDA-Public Use
  Company Number: 200311255FR

PATIENT
  Age: 19 Year
  Sex: Male

DRUGS (2)
  1. FLAGYL [Suspect]
     Indication: COLITIS ULCERATIVE
     Route: 048
     Dates: start: 20030124, end: 20030128
  2. PENTASA [Suspect]
     Route: 048
     Dates: start: 20030122, end: 20030128

REACTIONS (2)
  - COLITIS ULCERATIVE [None]
  - PANCREATITIS ACUTE [None]
